FAERS Safety Report 10257090 (Version 7)
Quarter: 2015Q2

REPORT INFORMATION
  Report Type: Report from Study
  Country: US (occurrence: US)
  Receive Date: 20140625
  Receipt Date: 20150626
  Transmission Date: 20150821
  Serious: Yes (Hospitalization)
  Sender: FDA-Public Use
  Company Number: US-UCBSA-2014002397

PATIENT
  Age: 17 Year
  Sex: Male
  Weight: 72.1 kg

DRUGS (2)
  1. CERTOLIZUMAB PEGOL JIA [Suspect]
     Active Substance: CERTOLIZUMAB PEGOL
     Indication: JUVENILE IDIOPATHIC ARTHRITIS
     Dosage: 100 MG, EV 2 WEEKS(QOW)
     Route: 058
     Dates: start: 20131030
  2. CERTOLIZUMAB PEGOL JIA [Suspect]
     Active Substance: CERTOLIZUMAB PEGOL
     Dosage: 200 MG, EV 2 WEEKS(QOW)
     Route: 058
     Dates: start: 20130320, end: 20131018

REACTIONS (2)
  - Self injurious behaviour [Recovered/Resolved]
  - Anxiety [Recovered/Resolved]

NARRATIVE: CASE EVENT DATE: 20140602
